FAERS Safety Report 19868187 (Version 1)
Quarter: 2021Q3

REPORT INFORMATION
  Report Type: Spontaneous
  Country: US (occurrence: US)
  Receive Date: 20210922
  Receipt Date: 20210922
  Transmission Date: 20211014
  Serious: No
  Sender: FDA-Public Use
  Company Number: US-UNICHEM PHARMACEUTICALS (USA) INC-UCM202106-000594

PATIENT
  Age: 64 Year
  Sex: Male

DRUGS (4)
  1. CLONIDINE HCL [Suspect]
     Active Substance: CLONIDINE HYDROCHLORIDE
     Indication: HYPERTENSION
     Dosage: OVAL TABLETS (ONE TABLET IN MORNING ONE IN EVENING)
     Dates: start: 201805
  2. AMLODIPINE BESYLATE. [Concomitant]
     Active Substance: AMLODIPINE BESYLATE
     Indication: HYPERTENSION
     Dosage: UNKNOWN
  3. LISINOPRIL. [Concomitant]
     Active Substance: LISINOPRIL
     Indication: RENAL DISORDER
     Dosage: UNKNOWN
  4. CLONIDINE HCL [Suspect]
     Active Substance: CLONIDINE HYDROCHLORIDE
     Indication: ANXIETY
     Dosage: ROUND TABLETS (ONE IN MORNING AND ONE IN EVENING)
     Dates: start: 20210622

REACTIONS (5)
  - Blood pressure increased [Unknown]
  - Product use in unapproved indication [Unknown]
  - Anxiety [Unknown]
  - Blood pressure abnormal [Unknown]
  - Drug ineffective [Unknown]
